FAERS Safety Report 5534457-X (Version None)
Quarter: 2007Q4

REPORT INFORMATION
  Report Type: 
  Country: None (occurrence: None)
  Receive Date: 20071205
  Receipt Date: 20071128
  Transmission Date: 20080405
  Serious: Yes (Death)
  Sender: FDA-Public Use
  Company Number: B0498221A

PATIENT
  Age: 77 Year
  Sex: Female

DRUGS (7)
  1. AUGMENTIN '125' [Suspect]
     Indication: INFECTION
     Route: 042
     Dates: start: 20070822
  2. PREVISCAN [Suspect]
     Indication: VENTRICULAR TACHYARRHYTHMIA
     Dosage: 15MG PER DAY
     Route: 048
  3. LASIX [Concomitant]
     Route: 065
  4. LANTUS [Concomitant]
     Route: 065
  5. DIFFU K [Concomitant]
     Route: 065
  6. INEXIUM [Concomitant]
     Route: 065
  7. FORLAX [Concomitant]
     Route: 065

REACTIONS (3)
  - DEATH [None]
  - DRUG INTERACTION [None]
  - INTERNATIONAL NORMALISED RATIO INCREASED [None]
